FAERS Safety Report 25688867 (Version 1)
Quarter: 2025Q3

REPORT INFORMATION
  Report Type: Spontaneous
  Country: JO (occurrence: JO)
  Receive Date: 20250818
  Receipt Date: 20250818
  Transmission Date: 20251020
  Serious: Yes (Other)
  Sender: ALEXION PHARMACEUTICALS
  Company Number: JO-ASTRAZENECA-202508MES006144JO

PATIENT
  Age: 76 Year
  Sex: Male

DRUGS (1)
  1. BRILINTA [Suspect]
     Active Substance: TICAGRELOR
     Route: 065

REACTIONS (2)
  - Asphyxia [Unknown]
  - Abdominal pain [Unknown]
